FAERS Safety Report 9382958 (Version 2)
Quarter: 2013Q3

REPORT INFORMATION
  Report Type: Spontaneous
  Country: JP (occurrence: JP)
  Receive Date: 20130703
  Receipt Date: 20130904
  Transmission Date: 20140515
  Serious: No
  Sender: FDA-Public Use
  Company Number: JP-GILEAD-2013-0078196

PATIENT
  Age: 15 Year
  Sex: Male

DRUGS (5)
  1. AMBRISENTAN [Suspect]
     Indication: PULMONARY ARTERIAL HYPERTENSION
     Dosage: 5MG PER DAY
     Route: 048
     Dates: start: 20130614
  2. AMBRISENTAN [Suspect]
     Dosage: 5MG PER DAY
     Route: 048
     Dates: start: 20130521, end: 20130609
  3. ADCIRCA [Suspect]
     Indication: PULMONARY ARTERIAL HYPERTENSION
     Dosage: 40MG PER DAY
     Route: 048
     Dates: start: 20130614
  4. ADCIRCA [Suspect]
     Dosage: 40MG PER DAY
     Route: 048
     Dates: start: 20130521, end: 20130609
  5. BERASUS [Concomitant]
     Indication: PULMONARY ARTERIAL HYPERTENSION
     Dosage: 60MCG TWICE PER DAY
     Route: 048
     Dates: start: 20130614

REACTIONS (1)
  - Headache [Not Recovered/Not Resolved]
